FAERS Safety Report 9669160 (Version 2)
Quarter: 2013Q4

REPORT INFORMATION
  Report Type: Spontaneous
  Country: US (occurrence: US)
  Receive Date: 20131105
  Receipt Date: 20131216
  Transmission Date: 20140711
  Serious: Yes (Death, Other)
  Sender: FDA-Public Use
  Company Number: US-ELI_LILLY_AND_COMPANY-US201311000123

PATIENT
  Sex: 0

DRUGS (4)
  1. PEMETREXED [Suspect]
     Indication: CENTRAL NERVOUS SYSTEM LYMPHOMA
     Dosage: UNK
  2. FOLIC ACID [Concomitant]
     Dosage: 1 MG, QD
  3. VITAMIN B12 [Concomitant]
     Dosage: 1000 UG, OTHER
     Route: 030
  4. DEXAMETHASONE [Concomitant]
     Indication: RASH
     Dosage: 4 MG, BID
     Route: 048

REACTIONS (1)
  - Pneumonia [Fatal]
